FAERS Safety Report 5104664-9 (Version None)
Quarter: 2006Q3

REPORT INFORMATION
  Report Type: 
  Country: None (occurrence: None)
  Receive Date: 20060911
  Receipt Date: 20060822
  Transmission Date: 20061208
  Serious: Yes (Life-Threatening, Hospitalization, Other)
  Sender: FDA-Public Use
  Company Number: DE200607000889

PATIENT
  Age: 71 Year
  Sex: Female

DRUGS (13)
  1. YENTREVE (DULOXETINE HYDROCHLORIDE) CAPSULE [Suspect]
     Indication: URINARY INCONTINENCE
     Dosage: 40 MG, DAILY (1/D), ORAL
     Route: 048
     Dates: start: 20050701, end: 20050701
  2. BETA BLOCKING AGENTS [Concomitant]
  3. HYDROCHLOROTHIAZIDE [Concomitant]
  4. SIMVASTATIN [Concomitant]
  5. VERAPAMIL [Concomitant]
  6. RAMIPRIL [Concomitant]
  7. OMEPRAZOLE [Concomitant]
  8. VITAMINE D3 B.O.N. (COLECALCIFEROL) [Concomitant]
  9. LAKTULOSE (LACTULOSE) [Concomitant]
  10. ISOCOVER (CLOPIDOGREL SULFATE) [Concomitant]
  11. VENLAFAXINE HCL [Concomitant]
  12. STILNOX/FRA/ (ZOLPIDEM) [Concomitant]
  13. AURORIX /SWE/ (MOCLOBEMIDE) [Concomitant]

REACTIONS (11)
  - ANGIOPATHY [None]
  - BUNDLE BRANCH BLOCK LEFT [None]
  - CERVICAL VERTEBRAL FRACTURE [None]
  - CONVULSION [None]
  - DEPRESSION [None]
  - DIVERTICULITIS [None]
  - FALL [None]
  - HYPERTENSIVE CRISIS [None]
  - INTRACRANIAL ANEURYSM [None]
  - LEUKOPENIA [None]
  - WEIGHT DECREASED [None]
